FAERS Safety Report 20980977 (Version 1)
Quarter: 2022Q2

REPORT INFORMATION
  Report Type: Report from Study
  Country: US (occurrence: US)
  Receive Date: 20220620
  Receipt Date: 20220620
  Transmission Date: 20220721
  Serious: No
  Sender: FDA-Public Use
  Company Number: US-NOVARTISTESTPH-NVSC2022US140535

PATIENT
  Sex: Female

DRUGS (2)
  1. PIQRAY [Suspect]
     Active Substance: ALPELISIB
     Indication: Product used for unknown indication
     Dosage: 300 MG, QD (TWO 150MG TABLETS)
     Route: 048
  2. PIQRAY [Suspect]
     Active Substance: ALPELISIB
     Dosage: 250 MG
     Route: 065

REACTIONS (1)
  - Oedema [Unknown]
